FAERS Safety Report 13251691 (Version 1)
Quarter: 2017Q1

REPORT INFORMATION
  Report Type: Spontaneous
  Country: US (occurrence: US)
  Receive Date: 20170220
  Receipt Date: 20170220
  Transmission Date: 20170428
  Serious: No
  Sender: FDA-Public Use
  Company Number: US-PFIZER INC-2016577607

PATIENT
  Age: 59 Year
  Sex: Female

DRUGS (8)
  1. CALCIUM 600 MG WITH VITAMIN D [Concomitant]
     Dosage: 2 DF, DAILY
  2. SIMVASTATIN. [Concomitant]
     Active Substance: SIMVASTATIN
     Indication: BLOOD CHOLESTEROL INCREASED
     Dosage: 40 MG, DAILY
  3. TEMAZEPAM. [Concomitant]
     Active Substance: TEMAZEPAM
     Indication: SLEEP DISORDER
     Dosage: UNK UNK, 1X/DAY (1 OR 2 TABLETS A BEDTIME 15 MG)
  4. MIDODRINE [Concomitant]
     Active Substance: MIDODRINE
     Indication: HYPOTENSION
     Dosage: 2.5 MG, 2X/DAY (5 MG 1/2 TABLET TWICE DAILY)
  5. CLOPIDOGREL [Concomitant]
     Active Substance: CLOPIDOGREL BISULFATE
     Dosage: 1 DF, 1X/DAY
  6. VITAMIN D3 [Concomitant]
     Active Substance: CHOLECALCIFEROL
     Dosage: 1 DF, DAILY
  7. LYRICA [Suspect]
     Active Substance: PREGABALIN
     Indication: POST HERPETIC NEURALGIA
     Dosage: 600 MG, DAILY (1 IN MORNING, 1 - AFTERNOON, 2 - NIGHT )
     Dates: start: 201508
  8. BAYER LOW DOSE [Concomitant]
     Active Substance: ASPIRIN
     Dosage: 8 MG, DAILY

REACTIONS (2)
  - Weight increased [Unknown]
  - Drug effect incomplete [Unknown]
